FAERS Safety Report 19514638 (Version 1)
Quarter: 2021Q3

REPORT INFORMATION
  Report Type: Report from Study
  Country: US (occurrence: US)
  Receive Date: 20210709
  Receipt Date: 20210709
  Transmission Date: 20211014
  Serious: Yes (Other)
  Sender: FDA-Public Use
  Company Number: US-PFIZER INC-2021839300

PATIENT

DRUGS (3)
  1. DAUNORUBICIN [Suspect]
     Active Substance: DAUNORUBICIN
     Indication: ACUTE MYELOID LEUKAEMIA
     Dosage: 45 MG/M2, CYCLIC (3 DAYS)
  2. CYTARABINE. [Suspect]
     Active Substance: CYTARABINE
     Indication: ACUTE MYELOID LEUKAEMIA
     Dosage: 100 MG/M2, CYCLIC (7 DAYS)
  3. ELTROMBOPAG [Suspect]
     Active Substance: ELTROMBOPAG
     Indication: ACUTE MYELOID LEUKAEMIA
     Dosage: UNK

REACTIONS (9)
  - Febrile neutropenia [Unknown]
  - Pyrexia [Unknown]
  - White blood cell count decreased [Unknown]
  - Embolism [Unknown]
  - Rash maculo-papular [Unknown]
  - Pain [Unknown]
  - Hypocalcaemia [Unknown]
  - Muscular weakness [Unknown]
  - Hypokalaemia [Unknown]
